FAERS Safety Report 11251321 (Version 1)
Quarter: 2015Q3

REPORT INFORMATION
  Report Type: Spontaneous
  Country: US (occurrence: US)
  Receive Date: 20150708
  Receipt Date: 20150708
  Transmission Date: 20151125
  Serious: No
  Sender: FDA-Public Use
  Company Number: US-ELI_LILLY_AND_COMPANY-US201111004263

PATIENT
  Sex: Female

DRUGS (3)
  1. PROZAC [Suspect]
     Active Substance: FLUOXETINE HYDROCHLORIDE
     Indication: ADJUSTMENT DISORDER WITH MIXED ANXIETY AND DEPRESSED MOOD
     Dosage: 20 MG, QD
     Dates: end: 201109
  2. PROZAC [Suspect]
     Active Substance: FLUOXETINE HYDROCHLORIDE
     Dosage: 40 MG, QD
     Dates: start: 201109
  3. PROZAC [Suspect]
     Active Substance: FLUOXETINE HYDROCHLORIDE
     Dosage: 20 MG, QD

REACTIONS (4)
  - Dizziness [Unknown]
  - Nausea [Unknown]
  - Somnolence [Unknown]
  - Fatigue [Unknown]
